FAERS Safety Report 12837982 (Version 1)
Quarter: 2016Q4

REPORT INFORMATION
  Report Type: Spontaneous
  Country: ES (occurrence: ES)
  Receive Date: 20161012
  Receipt Date: 20161012
  Transmission Date: 20170207
  Serious: Yes (Hospitalization)
  Sender: FDA-Public Use
  Company Number: ES-ROCHE-1840464

PATIENT
  Age: 77 Year
  Sex: Male

DRUGS (6)
  1. MADOPAR [Concomitant]
     Active Substance: BENSERAZIDE HYDROCHLORIDE\LEVODOPA
     Route: 048
  2. AZILECT [Concomitant]
     Active Substance: RASAGILINE MESYLATE
     Route: 048
  3. RIVOTRIL [Suspect]
     Active Substance: CLONAZEPAM
     Indication: PRODUCT USED FOR UNKNOWN INDICATION
     Route: 048
     Dates: start: 20160829, end: 20160905
  4. NEUPRO [Concomitant]
     Active Substance: ROTIGOTINE
     Route: 062
  5. SEROQUEL [Concomitant]
     Active Substance: QUETIAPINE FUMARATE
     Dosage: FORM:PROLONGED RELEASE
     Route: 048
  6. MIRAPEXIN [Concomitant]
     Active Substance: PRAMIPEXOLE
     Route: 048

REACTIONS (4)
  - Dysstasia [Recovered/Resolved]
  - Depressed level of consciousness [Recovered/Resolved]
  - Dysarthria [Recovered/Resolved]
  - Somnolence [Recovered/Resolved]

NARRATIVE: CASE EVENT DATE: 20160829
